FAERS Safety Report 4302538-4 (Version None)
Quarter: 2004Q1

REPORT INFORMATION
  Report Type: 
  Country: None (occurrence: None)
  Receive Date: 20040220
  Receipt Date: 20040211
  Transmission Date: 20041129
  Serious: Yes (Death)
  Sender: FDA-Public Use
  Company Number: US-JNJFOC-20031000711

PATIENT
  Age: 79 Year
  Sex: Male
  Weight: 74.8435 kg

DRUGS (6)
  1. REMINYL [Suspect]
     Indication: DEMENTIA ALZHEIMER'S TYPE
     Dosage: 8 MG, 2 IN 1 DAY, ORAL
     Route: 048
     Dates: start: 20030601
  2. ALEVE [Concomitant]
  3. COUMADIN (TABLETS) WARFARIN SODIUM [Concomitant]
  4. ATENOLOL [Concomitant]
  5. GINKO BILOBA (GINKGO BILOBA) [Concomitant]
  6. FLOMAX [Concomitant]

REACTIONS (1)
  - CEREBRAL HAEMORRHAGE [None]
